FAERS Safety Report 18986797 (Version 1)
Quarter: 2021Q1

REPORT INFORMATION
  Report Type: Spontaneous
  Country: US (occurrence: US)
  Receive Date: 20210309
  Receipt Date: 20210309
  Transmission Date: 20210420
  Serious: No
  Sender: FDA-Public Use
  Company Number: None

PATIENT
  Age: 69 Year
  Sex: Male
  Weight: 76.5 kg

DRUGS (1)
  1. JAKAFI [Suspect]
     Active Substance: RUXOLITINIB
     Dosage: ?          OTHER FREQUENCY:1TB * 2 DLY;?
     Route: 048

REACTIONS (1)
  - Weight decreased [None]

NARRATIVE: CASE EVENT DATE: 20210309
